FAERS Safety Report 15209060 (Version 2)
Quarter: 2018Q3

REPORT INFORMATION
  Report Type: Spontaneous
  Country: MY (occurrence: MY)
  Receive Date: 20180727
  Receipt Date: 20180803
  Transmission Date: 20181010
  Serious: Yes (Death, Other)
  Sender: FDA-Public Use
  Company Number: MY-JNJFOC-20180729070

PATIENT
  Age: 70 Year
  Sex: Male

DRUGS (3)
  1. DEXAMETHASONE. [Concomitant]
     Active Substance: DEXAMETHASONE
     Route: 065
  2. DARZALEX [Suspect]
     Active Substance: DARATUMUMAB
     Indication: PRODUCT USED FOR UNKNOWN INDICATION
     Route: 065
     Dates: end: 20180714
  3. REVLIMID [Concomitant]
     Active Substance: LENALIDOMIDE
     Route: 065

REACTIONS (4)
  - Diabetes mellitus [Fatal]
  - Cardiac failure [Fatal]
  - Disease progression [Fatal]
  - Interstitial lung disease [Fatal]
